FAERS Safety Report 4316791-4 (Version None)
Quarter: 2004Q1

REPORT INFORMATION
  Report Type: 
  Country: None (occurrence: None)
  Receive Date: 20040312
  Receipt Date: 20040312
  Transmission Date: 20041129
  Serious: No
  Sender: FDA-Public Use
  Company Number: None

PATIENT
  Age: 68 Year
  Sex: Male

DRUGS (1)
  1. ETHEX BRAND HIGH POTENCY MORPHINE SULFATE [Suspect]
     Indication: CARCINOMA
     Dosage: 240 ML BOTTLE ORAL SOLUTION WITH ^SPOON^

REACTIONS (1)
  - MEDICATION ERROR [None]
